FAERS Safety Report 15728424 (Version 2)
Quarter: 2018Q4

REPORT INFORMATION
  Report Type: Spontaneous
  Country: US (occurrence: US)
  Receive Date: 20181217
  Receipt Date: 20181223
  Transmission Date: 20190205
  Serious: Yes (Other)
  Sender: FDA-Public Use
  Company Number: US-ABBVIE-18S-163-2589234-00

PATIENT
  Sex: Female

DRUGS (2)
  1. LUPRON DEPOT [Suspect]
     Active Substance: LEUPROLIDE ACETATE
     Indication: BREAST CANCER
     Route: 030
     Dates: start: 201812, end: 201812
  2. LUPRON DEPOT [Suspect]
     Active Substance: LEUPROLIDE ACETATE
     Indication: BREAST CANCER
     Route: 030
     Dates: start: 201812, end: 201812

REACTIONS (7)
  - Incorrect dose administered [Recovered/Resolved]
  - Off label use [Not Recovered/Not Resolved]
  - Product administration error [Recovered/Resolved]
  - Product use issue [Not Recovered/Not Resolved]
  - Product preparation issue [Recovered/Resolved]
  - Poor quality product administered [Recovered/Resolved]
  - No adverse event [Unknown]

NARRATIVE: CASE EVENT DATE: 201812
